FAERS Safety Report 8325744-0 (Version None)
Quarter: 2012Q2

REPORT INFORMATION
  Report Type: 
  Country: None (occurrence: None)
  Receive Date: 20120501
  Receipt Date: 20120418
  Transmission Date: 20120825
  Serious: No
  Sender: FDA-Public Use
  Company Number: US-BIOGENIDEC-2010BI045011

PATIENT
  Sex: Female

DRUGS (2)
  1. TYSABRI [Suspect]
     Indication: MULTIPLE SCLEROSIS
     Route: 042
     Dates: start: 20100903
  2. COUMADIN [Concomitant]
     Indication: PULMONARY EMBOLISM
     Dates: start: 19920101

REACTIONS (16)
  - ANXIETY [None]
  - WHITE BLOOD CELL COUNT INCREASED [None]
  - PAIN IN EXTREMITY [None]
  - INCONTINENCE [None]
  - BACK PAIN [None]
  - VESSEL PUNCTURE SITE HAEMATOMA [None]
  - FURUNCLE [None]
  - INFUSION SITE PAIN [None]
  - STRESS [None]
  - MICTURITION URGENCY [None]
  - VAGINAL ABSCESS [None]
  - DIARRHOEA [None]
  - VESSEL PUNCTURE SITE PAIN [None]
  - FATIGUE [None]
  - CATHETER SITE PAIN [None]
  - URINARY TRACT INFECTION [None]
